FAERS Safety Report 21571983 (Version 1)
Quarter: 2022Q4

REPORT INFORMATION
  Report Type: Spontaneous
  Country: US (occurrence: None)
  Receive Date: 20221108
  Receipt Date: 20221108
  Transmission Date: 20230113
  Serious: Yes (Death)
  Sender: FDA-Public Use
  Company Number: None

PATIENT
  Age: 62 Year
  Sex: Female
  Weight: 102.97 kg

DRUGS (8)
  1. GLEOSTINE [Suspect]
     Active Substance: LOMUSTINE
     Indication: Brain neoplasm malignant
     Dosage: OTHER FREQUENCY : EVERY 6 WEEKS;?
     Route: 048
     Dates: start: 202207, end: 20221103
  2. ALBUTEROL [Concomitant]
     Active Substance: ALBUTEROL
  3. ATIVAN [Concomitant]
     Active Substance: LORAZEPAM
  4. COZAAR [Concomitant]
     Active Substance: LOSARTAN POTASSIUM
  5. DECADRON [Concomitant]
     Active Substance: DEXAMETHASONE
  6. HYDROCORTISONE [Concomitant]
     Active Substance: HYDROCORTISONE
  7. RITALIN [Concomitant]
     Active Substance: METHYLPHENIDATE HYDROCHLORIDE
  8. ZOFRAN [Concomitant]
     Active Substance: ONDANSETRON HYDROCHLORIDE

REACTIONS (1)
  - Death [None]

NARRATIVE: CASE EVENT DATE: 20221103
